FAERS Safety Report 9594366 (Version 1)
Quarter: 2013Q3

REPORT INFORMATION
  Report Type: Spontaneous
  Country: US (occurrence: None)
  Receive Date: 20130923
  Receipt Date: 20130923
  Transmission Date: 20140515
  Serious: Yes (Death)
  Sender: FDA-Public Use
  Company Number: 2013STPI000097

PATIENT
  Age: 76 Year
  Sex: Female

DRUGS (5)
  1. MATULANE [Suspect]
     Indication: CHRONIC LYMPHOCYTIC LEUKAEMIA TRANSFORMATION
     Dates: start: 20130213, end: 20130319
  2. MATULANE [Suspect]
     Indication: NON-HODGKIN^S LYMPHOMA
     Dates: start: 20130213, end: 20130319
  3. CYTOXAN LYOPHILIZED (CYCLOPHOSPHAMIDE) [Concomitant]
  4. ETOPOSIDE (ETOPOSIDE) [Concomitant]
  5. PREDNISONE (PREDNISONE) [Concomitant]

REACTIONS (1)
  - Non-Hodgkin^s lymphoma [None]
